FAERS Safety Report 8717537 (Version 2)
Quarter: 2013Q1

REPORT INFORMATION
  Report Type: Spontaneous
  Country: US (occurrence: US)
  Receive Date: 20120810
  Receipt Date: 20130221
  Transmission Date: 20140127
  Serious: Yes (Disabling, Other)
  Sender: FDA-Public Use
  Company Number: US-PFIZER INC-2012190739

PATIENT
  Age: 68 Year
  Sex: Female
  Weight: 72.56 kg

DRUGS (1)
  1. AZITHROMYCIN [Suspect]
     Dosage: 250 MG, 1X/DAY
     Dates: start: 20110628

REACTIONS (5)
  - Blindness [Unknown]
  - Visual impairment [Unknown]
  - Photopsia [Unknown]
  - Eye disorder [Unknown]
  - Blindness [Not Recovered/Not Resolved]
